FAERS Safety Report 6596965-2 (Version None)
Quarter: 2010Q1

REPORT INFORMATION
  Report Type: 
  Country: None (occurrence: None)
  Receive Date: 20100212
  Receipt Date: 20100128
  Transmission Date: 20100710
  Serious: Yes (Death, Other)
  Sender: FDA-Public Use
  Company Number: 2010000511

PATIENT
  Age: 3 Year
  Sex: Male

DRUGS (3)
  1. AMRIX [Suspect]
     Dosage: ORAL
     Route: 048
     Dates: start: 20090130, end: 20090130
  2. OXYCODONE HCL [Suspect]
     Dates: start: 20090130, end: 20090130
  3. ALPRAZOLAM [Suspect]

REACTIONS (6)
  - ASTHMA [None]
  - DRUG TOXICITY [None]
  - DYSPNOEA [None]
  - UNRESPONSIVE TO STIMULI [None]
  - VICTIM OF CHILD ABUSE [None]
  - VOMITING [None]
